FAERS Safety Report 8817710 (Version 1)
Quarter: 2012Q4

REPORT INFORMATION
  Report Type: 
  Country: AR (occurrence: AR)
  Receive Date: 20121001
  Receipt Date: 20121001
  Transmission Date: 20130627
  Serious: Yes (Other)
  Sender: FDA-Public Use
  Company Number: AR-PFIZER INC-2012237682

PATIENT
  Age: 75 Year
  Sex: Female

DRUGS (6)
  1. PEGVISOMANT [Suspect]
     Indication: ACROMEGALY
     Dosage: 10 mg, 1x/day
     Route: 058
     Dates: start: 20120301, end: 201209
  2. DILATREND [Concomitant]
     Dosage: UNK
  3. LOTRIAL [Concomitant]
     Dosage: UNK
  4. VASOTENAL ^PHARMA INVESTI^ [Concomitant]
  5. T4 [Concomitant]
     Dosage: UNK
  6. DIUREX [Concomitant]
     Dosage: UNK

REACTIONS (2)
  - Cholelithiasis [Recovering/Resolving]
  - Abdominal pain [Recovering/Resolving]
